FAERS Safety Report 4527115-1 (Version None)
Quarter: 2004Q4

REPORT INFORMATION
  Report Type: 
  Country: None (occurrence: None)
  Receive Date: 20041201
  Receipt Date: 20041004
  Transmission Date: 20050328
  Serious: Yes (Other)
  Sender: FDA-Public Use
  Company Number: US094196

PATIENT
  Age: 44 Year
  Sex: Male

DRUGS (6)
  1. ENBREL [Suspect]
     Indication: PSORIASIS
     Dosage: 50 MG, 2 IN 1 WEEKS, SC
     Route: 058
     Dates: start: 20040801
  2. VALPROATE SODIUM [Concomitant]
  3. DILTIAZEM HYDROCHLORIDE [Concomitant]
  4. LISINOPRIL [Concomitant]
  5. DIAZEPAM [Concomitant]
  6. CLINDAMYCIN HCL [Concomitant]

REACTIONS (3)
  - CONDITION AGGRAVATED [None]
  - CONVULSION [None]
  - PSORIASIS [None]
